FAERS Safety Report 10463437 (Version 1)
Quarter: 2014Q3

REPORT INFORMATION
  Report Type: Spontaneous
  Country: US (occurrence: None)
  Receive Date: 20140917
  Receipt Date: 20140917
  Transmission Date: 20150326
  Serious: Yes (Hospitalization)
  Sender: FDA-Public Use
  Company Number: US-H14001-14-00587

PATIENT
  Age: 16 Year
  Sex: Female

DRUGS (4)
  1. ZOLPIDEM [Suspect]
     Active Substance: ZOLPIDEM\ZOLPIDEM TARTRATE
     Indication: PRODUCT USED FOR UNKNOWN INDICATION
     Dosage: A SINGLE DOSE
  2. PENTOBARBITAL [Suspect]
     Active Substance: PENTOBARBITAL
     Indication: PRODUCT USED FOR UNKNOWN INDICATION
  3. ONDANSETRON [Suspect]
     Active Substance: ONDANSETRON
     Indication: PRODUCT USED FOR UNKNOWN INDICATION
     Dosage: A SINGLE DOSE
  4. A BEER [Suspect]
     Active Substance: ALCOHOL
     Indication: PRODUCT USED FOR UNKNOWN INDICATION

REACTIONS (13)
  - Blood pH decreased [None]
  - Balance disorder [None]
  - Hypotension [None]
  - Erythema [None]
  - Blister [None]
  - Suicide attempt [None]
  - Peripheral coldness [None]
  - Brain injury [None]
  - Unresponsive to stimuli [None]
  - Clonus [None]
  - Dizziness [None]
  - Chills [None]
  - Electrocardiogram QT prolonged [None]
